FAERS Safety Report 4386205-7 (Version None)
Quarter: 2004Q2

REPORT INFORMATION
  Report Type: 
  Country: None (occurrence: None)
  Receive Date: 20040629
  Receipt Date: 20040617
  Transmission Date: 20050107
  Serious: Yes (Hospitalization)
  Sender: FDA-Public Use
  Company Number: FR-BRISTOL-MYERS SQUIBB COMPANY-12623260

PATIENT
  Age: 55 Year
  Sex: Male

DRUGS (2)
  1. ENDOXAN [Suspect]
     Indication: DERMATOMYOSITIS
     Route: 042
     Dates: start: 20040510, end: 20040510
  2. MABTHERA [Suspect]
     Indication: DERMATOMYOSITIS
     Dosage: INITIAL DOSE: 03-MAY-2004
     Route: 042
     Dates: start: 20040511, end: 20040511

REACTIONS (3)
  - ATRIAL FIBRILLATION [None]
  - ATRIAL FLUTTER [None]
  - CHILLS [None]
